FAERS Safety Report 10267638 (Version 1)
Quarter: 2014Q2

REPORT INFORMATION
  Report Type: Spontaneous
  Country: US (occurrence: None)
  Receive Date: 20140626
  Receipt Date: 20140626
  Transmission Date: 20141212
  Serious: Yes (Hospitalization)
  Sender: FDA-Public Use
  Company Number: None

PATIENT
  Age: 47 Year
  Sex: Male
  Weight: 65.5 kg

DRUGS (11)
  1. SOFOSBUVIR [Suspect]
     Indication: HEPATITIS C VIRUS TEST POSITIVE
     Route: 048
     Dates: start: 20140312
  2. RIBAVIRIN [Suspect]
     Indication: HEPATITIS C VIRUS TEST POSITIVE
     Route: 048
     Dates: start: 20140312
  3. PREDNISONE [Concomitant]
  4. LEVAQUIN [Concomitant]
  5. PROTONIX [Concomitant]
  6. PRAVACHOL [Concomitant]
  7. ADVAIR [Concomitant]
  8. SPIRIVA [Concomitant]
  9. ASMANEX [Concomitant]
  10. VERAPAMIL [Concomitant]
  11. IPRATROPIUM BROMIDE [Concomitant]

REACTIONS (1)
  - Chronic obstructive pulmonary disease [None]
